FAERS Safety Report 14735204 (Version 1)
Quarter: 2018Q2

REPORT INFORMATION
  Report Type: Spontaneous
  Country: US (occurrence: US)
  Receive Date: 20180409
  Receipt Date: 20180409
  Transmission Date: 20180711
  Serious: No
  Sender: FDA-Public Use
  Company Number: US-GLAXOSMITHKLINE-US2018058841

PATIENT
  Sex: Female

DRUGS (1)
  1. NUCALA [Suspect]
     Active Substance: MEPOLIZUMAB
     Indication: ASTHMA
     Dosage: 100 MG, UNK
     Route: 058

REACTIONS (5)
  - Dyspnoea [Unknown]
  - Headache [Unknown]
  - Chest discomfort [Unknown]
  - Abdominal pain [Unknown]
  - Malaise [Unknown]
